FAERS Safety Report 7045234-5 (Version None)
Quarter: 2010Q3

REPORT INFORMATION
  Report Type: 
  Country: None (occurrence: None)
  Receive Date: 20100929
  Receipt Date: 20100709
  Transmission Date: 20110219
  Serious: No
  Sender: FDA-Public Use
  Company Number: US-WYE-H16454210

PATIENT
  Age: 48 Year
  Sex: Female
  Weight: 90.8 kg

DRUGS (4)
  1. PRISTIQ [Suspect]
     Indication: ANXIETY
     Dosage: 50 MG 1X PER 1 DAY
     Dates: start: 20100705
  2. PRISTIQ [Suspect]
     Indication: MIGRAINE
     Dosage: 50 MG 1X PER 1 DAY
     Dates: start: 20100705
  3. LEVOTHYROXINE SODIUM [Concomitant]
  4. MAXZIDE [Concomitant]

REACTIONS (2)
  - HEADACHE [None]
  - INSOMNIA [None]
